FAERS Safety Report 8453327-0 (Version None)
Quarter: 2012Q2

REPORT INFORMATION
  Report Type: 
  Country: None (occurrence: None)
  Receive Date: 20120620
  Receipt Date: 20120512
  Transmission Date: 20120825
  Serious: No
  Sender: FDA-Public Use
  Company Number: US-VERTEX PHARMACEUTICALS INC.-AE-2012-007053

PATIENT
  Sex: Male
  Weight: 113.5 kg

DRUGS (11)
  1. GABAPENTIN [Concomitant]
     Indication: NEURALGIA
     Route: 048
  2. INDOCIN [Concomitant]
     Indication: ARTHRALGIA
     Route: 048
  3. METOPROLOL SUCCINATE [Concomitant]
     Indication: HYPERTENSION
  4. INCIVEK [Suspect]
     Indication: HEPATITIS C
     Route: 048
     Dates: start: 20120508
  5. PEGASYS [Concomitant]
     Indication: HEPATITIS C
     Route: 058
     Dates: start: 20120508
  6. HYDROXYZINE [Concomitant]
     Indication: HYPERSENSITIVITY
     Route: 048
  7. TRAZODONE HCL [Concomitant]
     Indication: DEPRESSION
     Route: 048
  8. ASPIRIN [Concomitant]
     Route: 048
  9. RIBAVIRIN [Concomitant]
     Indication: HEPATITIS C
     Route: 048
     Dates: start: 20120508
  10. SYMBICORT [Concomitant]
     Indication: ASTHMA
  11. LISINOPRIL [Concomitant]
     Indication: HYPERTENSION
     Route: 048

REACTIONS (2)
  - HYPERSOMNIA [None]
  - ABDOMINAL DISTENSION [None]
